FAERS Safety Report 9758628 (Version 1)
Quarter: 2013Q4

REPORT INFORMATION
  Report Type: Spontaneous
  Country: US (occurrence: None)
  Receive Date: 20131216
  Receipt Date: 20131216
  Transmission Date: 20140711
  Serious: Yes (Hospitalization)
  Sender: FDA-Public Use
  Company Number: VISP-PR-1206S-0264

PATIENT
  Age: 48 Year
  Sex: Female
  Weight: 79 kg

DRUGS (2)
  1. VISI PAQUE (IODIXANOL) [Suspect]
     Indication: PRODUCT USED FOR UNKNOWN INDICATION
     Dosage: 98 ML, SINGLE DOSE, INTRAVENOUS?
  2. VISI PAQUE (IODIXANOL) [Suspect]
     Indication: DIAGNOSTIC PROCEDURE
     Dosage: 98 ML, SINGLE DOSE, INTRAVENOUS?

REACTIONS (4)
  - Hypersensitivity [None]
  - Sneezing [None]
  - Eye swelling [None]
  - Swelling face [None]
